FAERS Safety Report 21573060 (Version 2)
Quarter: 2022Q4

REPORT INFORMATION
  Report Type: Spontaneous
  Country: CA (occurrence: CA)
  Receive Date: 20221109
  Receipt Date: 20221221
  Transmission Date: 20230113
  Serious: Yes (Other)
  Sender: FDA-Public Use
  Company Number: CA-PFIZER INC-202201142160

PATIENT
  Age: 29 Year
  Sex: Female

DRUGS (3)
  1. ABRILADA [Suspect]
     Active Substance: ADALIMUMAB-AFZB
     Indication: Hidradenitis
     Dosage: 160 MG, WEEK 0: 160MG, WEEK 2: 80MG, WEEK 4: 40MG AND 40MG EVERY WEEK THEREAFTER, FORMAT: UNK
     Route: 058
     Dates: start: 20220803, end: 20220803
  2. CLINDAMYCIN [Concomitant]
     Active Substance: CLINDAMYCIN
     Dosage: 1 DF, DOSAGE NOT AVAILABLE
     Route: 065
  3. MESALAMINE [Concomitant]
     Active Substance: MESALAMINE
     Dosage: 1 DROP, 1.2 G
     Route: 065

REACTIONS (14)
  - Pyrexia [Recovered/Resolved]
  - Colitis ulcerative [Not Recovered/Not Resolved]
  - Therapeutic product effect incomplete [Unknown]
  - COVID-19 [Recovering/Resolving]
  - Diarrhoea [Not Recovered/Not Resolved]
  - Skin depigmentation [Not Recovered/Not Resolved]
  - Dermatitis infected [Not Recovered/Not Resolved]
  - Pain [Not Recovered/Not Resolved]
  - Abdominal pain upper [Not Recovered/Not Resolved]
  - Nasal congestion [Not Recovered/Not Resolved]
  - Cough [Not Recovered/Not Resolved]
  - Headache [Not Recovered/Not Resolved]
  - Oropharyngeal pain [Not Recovered/Not Resolved]
  - Thanatophobia [Unknown]

NARRATIVE: CASE EVENT DATE: 20220101
